FAERS Safety Report 14191902 (Version 23)
Quarter: 2019Q4

REPORT INFORMATION
  Report Type: Spontaneous
  Country: US (occurrence: US)
  Receive Date: 20171115
  Receipt Date: 20191230
  Transmission Date: 20200122
  Serious: Yes (Death, Hospitalization)
  Sender: FDA-Public Use
  Company Number: US-ACTELION-A-US2017-162603

PATIENT
  Age: 59 Year
  Sex: Female
  Weight: 47.17 kg

DRUGS (11)
  1. VELETRI [Suspect]
     Active Substance: EPOPROSTENOL
     Indication: PULMONARY ARTERIAL HYPERTENSION
     Dosage: 30 NG/KG, PER MIN
     Route: 042
  2. ADEMPAS [Suspect]
     Active Substance: RIOCIGUAT
     Indication: PRODUCT USED FOR UNKNOWN INDICATION
     Dosage: UNK
     Route: 065
  3. ADCIRCA [Concomitant]
     Active Substance: TADALAFIL
  4. VELETRI [Suspect]
     Active Substance: EPOPROSTENOL
     Dosage: 27 UNK, UNK
     Route: 042
  5. VELETRI [Suspect]
     Active Substance: EPOPROSTENOL
     Dosage: 12 NG/KG, PER MIN
     Route: 042
  6. OXYGEN. [Concomitant]
     Active Substance: OXYGEN
  7. VELETRI [Suspect]
     Active Substance: EPOPROSTENOL
     Dosage: 14 NG/KG, PER MIN
     Route: 042
  8. VELETRI [Suspect]
     Active Substance: EPOPROSTENOL
     Dosage: 30 NG/KG, PER MIN
     Route: 042
  9. LETAIRIS [Concomitant]
     Active Substance: AMBRISENTAN
  10. VELETRI [Suspect]
     Active Substance: EPOPROSTENOL
     Dosage: 16 NG/KG, PER MIN
     Route: 042
  11. WARFARIN [Concomitant]
     Active Substance: WARFARIN

REACTIONS (35)
  - Dyspnoea [Recovering/Resolving]
  - Eye swelling [Unknown]
  - Lymph node pain [Unknown]
  - Malaise [Unknown]
  - Respiratory failure [Unknown]
  - Arthralgia [Unknown]
  - Diarrhoea [Unknown]
  - Pain in jaw [Unknown]
  - Contusion [Unknown]
  - Cough [Unknown]
  - Musculoskeletal pain [Unknown]
  - Catheter site pain [Unknown]
  - Dyspnoea exertional [Not Recovered/Not Resolved]
  - Device alarm issue [Not Recovered/Not Resolved]
  - Death [Fatal]
  - Arthritis [Unknown]
  - Sinusitis [Recovered/Resolved]
  - Pyrexia [Unknown]
  - Headache [Unknown]
  - Myalgia [Not Recovered/Not Resolved]
  - Somnolence [Recovering/Resolving]
  - Pneumonia [Unknown]
  - Pain in extremity [Unknown]
  - Fatigue [Unknown]
  - Unevaluable event [Unknown]
  - Atrial flutter [Recovering/Resolving]
  - Ear pain [Unknown]
  - Middle ear effusion [Unknown]
  - Chills [Unknown]
  - Pain [Unknown]
  - Upper respiratory tract infection [Recovered/Resolved]
  - Respiratory distress [Unknown]
  - Insomnia [Unknown]
  - Nausea [Unknown]
  - Device connection issue [Unknown]

NARRATIVE: CASE EVENT DATE: 20171128
